FAERS Safety Report 9095482 (Version 1)
Quarter: 2013Q1

REPORT INFORMATION
  Report Type: Report from Study
  Country: US (occurrence: US)
  Receive Date: 20130131
  Receipt Date: 20130131
  Transmission Date: 20140127
  Serious: Yes (Hospitalization)
  Sender: FDA-Public Use
  Company Number: US-ABBOTT-12P-163-1015837-00

PATIENT
  Sex: Female
  Weight: 65.83 kg

DRUGS (9)
  1. HUMIRA [Suspect]
     Indication: CROHN^S DISEASE
     Dates: start: 201101
  2. ALPRAZOLAM [Concomitant]
     Indication: ANXIETY
  3. AMITRIPTYLENE [Concomitant]
     Indication: DEPRESSION
  4. AMITRIPTYLENE [Concomitant]
     Indication: ANXIETY
  5. GABAPENTIN [Concomitant]
     Indication: PAIN
  6. MIRTAZAPINE [Concomitant]
     Indication: DEPRESSION
  7. PREDNISONE [Concomitant]
     Indication: CROHN^S DISEASE
  8. RANITIDINE [Concomitant]
     Indication: CROHN^S DISEASE
  9. TRAZADOL [Concomitant]
     Indication: PAIN

REACTIONS (6)
  - Back pain [Recovered/Resolved]
  - Abdominal pain [Recovered/Resolved]
  - Asthenia [Recovered/Resolved]
  - Dizziness [Recovered/Resolved]
  - Hypotension [Not Recovered/Not Resolved]
  - Injection site bruising [Recovered/Resolved]
